FAERS Safety Report 17271017 (Version 1)
Quarter: 2020Q1

REPORT INFORMATION
  Report Type: Spontaneous
  Country: US (occurrence: US)
  Receive Date: 20200115
  Receipt Date: 20200115
  Transmission Date: 20200409
  Serious: No
  Sender: FDA-Public Use
  Company Number: US-009507513-1912USA008068

PATIENT
  Sex: Female

DRUGS (3)
  1. NUVARING [Suspect]
     Active Substance: ETHINYL ESTRADIOL\ETONOGESTREL
     Indication: CONTRACEPTION
     Dosage: ONE RING, INSERTED FOR 3 WEEKS AND ONE WEEK RING-FREE INTERVAL
     Route: 067
     Dates: start: 20191127, end: 2019
  2. ASFOTASE ALFA [Concomitant]
     Active Substance: ASFOTASE ALFA
     Dosage: UNK
  3. NUVARING [Suspect]
     Active Substance: ETHINYL ESTRADIOL\ETONOGESTREL
     Dosage: ONE RING, INSERTED FOR 3 WEEKS AND ONE WEEK RING-FREE INTERVAL
     Route: 067
     Dates: start: 2019

REACTIONS (3)
  - Device expulsion [Unknown]
  - Accidental underdose [Unknown]
  - No adverse event [Unknown]

NARRATIVE: CASE EVENT DATE: 2019
